FAERS Safety Report 16764790 (Version 1)
Quarter: 2019Q3

REPORT INFORMATION
  Report Type: Spontaneous
  Country: DE (occurrence: DE)
  Receive Date: 20190903
  Receipt Date: 20190903
  Transmission Date: 20191005
  Serious: Yes (Hospitalization)
  Sender: FDA-Public Use
  Company Number: DE-SUN PHARMACEUTICAL INDUSTRIES LTD-2019R1-204310

PATIENT
  Age: 30 Year
  Sex: Male

DRUGS (6)
  1. CLOZAPINE. [Suspect]
     Active Substance: CLOZAPINE
     Indication: PSYCHOPATHIC PERSONALITY
     Dosage: 25 MILLIGRAM, DAILY
     Route: 065
  2. CLOZAPINE. [Interacting]
     Active Substance: CLOZAPINE
     Dosage: INCREASED TO 675 MILLIGRAM, DAILY
     Route: 065
  3. FLUPENTIXOL [Interacting]
     Active Substance: FLUPENTIXOL
     Indication: PSYCHOPATHIC PERSONALITY
     Dosage: 12 MILLIGRAM, DAILY
     Route: 065
  4. CLOZAPINE. [Interacting]
     Active Substance: CLOZAPINE
     Dosage: 450 MILLIGRAM, DAILY
     Route: 065
  5. CLOZAPINE. [Interacting]
     Active Substance: CLOZAPINE
     Indication: PSYCHOTIC SYMPTOM
     Dosage: STEPWISE INCREASED TO 400 MILLIGRAM, DAILY OVER A PERIOD OF 4 WEEKS
     Route: 065
  6. FLUPENTIXOL [Interacting]
     Active Substance: FLUPENTIXOL
     Indication: PSYCHOTIC SYMPTOM
     Dosage: 2 MILLIGRAM, DAILY
     Route: 065

REACTIONS (4)
  - Disease recurrence [Unknown]
  - Drug interaction [Unknown]
  - Salivary hypersecretion [Unknown]
  - Drug level decreased [Recovering/Resolving]
